FAERS Safety Report 11490610 (Version 2)
Quarter: 2015Q3

REPORT INFORMATION
  Report Type: Report from Study
  Country: RO (occurrence: RO)
  Receive Date: 20150910
  Receipt Date: 20150911
  Transmission Date: 20151125
  Serious: Yes (Hospitalization, Other)
  Sender: FDA-Public Use
  Company Number: RO-ABBVIE-15P-135-1457544-00

PATIENT
  Age: 64 Year
  Sex: Male

DRUGS (1)
  1. DUODOPA [Suspect]
     Active Substance: CARBIDOPA\LEVODOPA
     Indication: PARKINSON^S DISEASE
     Dosage: MD - 5.8 ML, CR - 3.8 ML/H, ED - 2.5 ML
     Route: 050
     Dates: start: 20140915

REACTIONS (11)
  - Pyelonephritis acute [Unknown]
  - Escherichia urinary tract infection [Recovered/Resolved]
  - Hepatic cyst [Unknown]
  - Nephrolithiasis [Unknown]
  - Chronic kidney disease [Unknown]
  - Renal cyst [Unknown]
  - Prostatic adenoma [Unknown]
  - Hepatic steatosis [Unknown]
  - Cerebral arteriosclerosis [Unknown]
  - Urinary tract infection [Recovered/Resolved]
  - Glucose tolerance impaired [Unknown]

NARRATIVE: CASE EVENT DATE: 20150830
